FAERS Safety Report 9010321 (Version 1)
Quarter: 2013Q1

REPORT INFORMATION
  Report Type: Spontaneous
  Country: US (occurrence: US)
  Receive Date: 20130110
  Receipt Date: 20130110
  Transmission Date: 20140127
  Serious: Yes (Other)
  Sender: FDA-Public Use
  Company Number: US-PFIZER INC-2013004857

PATIENT
  Age: 33 Year
  Sex: Female
  Weight: 104 kg

DRUGS (1)
  1. DEPO-PROVERA [Suspect]
     Indication: CONTRACEPTION

REACTIONS (4)
  - Convulsion [Unknown]
  - Amenorrhoea [Unknown]
  - Menorrhagia [Unknown]
  - Anxiety disorder [Unknown]
